FAERS Safety Report 14702905 (Version 2)
Quarter: 2018Q2

REPORT INFORMATION
  Report Type: Report from Study
  Country: None (occurrence: CA)
  Receive Date: 20180402
  Receipt Date: 20180404
  Transmission Date: 20180711
  Serious: Yes (Hospitalization, Other)
  Sender: FDA-Public Use
  Company Number: CA-ABBVIE-18K-028-2303413-00

PATIENT
  Age: 55 Year
  Sex: Female

DRUGS (1)
  1. HUMIRA [Suspect]
     Active Substance: ADALIMUMAB
     Indication: CROHN^S DISEASE
     Route: 058
     Dates: start: 20170613, end: 20180116

REACTIONS (8)
  - Adverse drug reaction [Not Recovered/Not Resolved]
  - Skin ulcer [Recovering/Resolving]
  - Gastrointestinal ulcer [Unknown]
  - Ageusia [Unknown]
  - Swelling [Recovered/Resolved]
  - Crohn^s disease [Not Recovered/Not Resolved]
  - Oedema [Recovering/Resolving]
  - Impaired healing [Recovered/Resolved]

NARRATIVE: CASE EVENT DATE: 201712
